FAERS Safety Report 24618985 (Version 1)
Quarter: 2024Q4

REPORT INFORMATION
  Report Type: Other
  Country: JP (occurrence: JP)
  Receive Date: 20241114
  Receipt Date: 20241114
  Transmission Date: 20250115
  Serious: Yes (Death)
  Sender: EMD SERONO INC
  Company Number: JP-Merck Healthcare KGaA-2024058946

PATIENT
  Age: 47 Year
  Sex: Female

DRUGS (1)
  1. BAVENCIO [Suspect]
     Active Substance: AVELUMAB
     Indication: Malignant neoplasm of renal pelvis
     Dosage: ADMINISTERED IN 4 COURSES.
     Route: 041

REACTIONS (1)
  - Metastases to central nervous system [Fatal]
